FAERS Safety Report 8248008-2 (Version None)
Quarter: 2012Q1

REPORT INFORMATION
  Report Type: 
  Country: None (occurrence: None)
  Receive Date: 20120330
  Receipt Date: 20120326
  Transmission Date: 20120608
  Serious: Yes (Hospitalization)
  Sender: FDA-Public Use
  Company Number: CA-ROCHE-1050470

PATIENT
  Sex: Female

DRUGS (5)
  1. SYMBICORT [Concomitant]
  2. XOLAIR [Suspect]
     Indication: ASTHMA
     Route: 058
     Dates: start: 20110126
  3. SINGULAIR [Concomitant]
  4. SPIRIVA [Concomitant]
  5. RHINARIS [Concomitant]

REACTIONS (7)
  - ASTHMA [None]
  - DYSPNOEA [None]
  - CANDIDIASIS [None]
  - HYPERTENSION [None]
  - LOWER RESPIRATORY TRACT INFECTION [None]
  - WEIGHT INCREASED [None]
  - PRODUCTIVE COUGH [None]
